FAERS Safety Report 7020475-1 (Version None)
Quarter: 2010Q3

REPORT INFORMATION
  Report Type: 
  Country: None (occurrence: None)
  Receive Date: 20100929
  Receipt Date: 20100916
  Transmission Date: 20110219
  Serious: Yes (Other)
  Sender: FDA-Public Use
  Company Number: US-ROCHE-725139

PATIENT
  Sex: Female
  Weight: 84 kg

DRUGS (17)
  1. BEVACIZUMAB [Suspect]
     Indication: EPENDYMOMA
     Route: 042
     Dates: start: 20100708
  2. BEVACIZUMAB [Suspect]
     Route: 042
     Dates: start: 20100722
  3. BEVACIZUMAB [Suspect]
     Dosage: FREQUENCY: EVERY 2 WEEKS.
     Route: 042
     Dates: start: 20100817, end: 20100830
  4. LAPATINIB [Suspect]
     Indication: EPENDYMOMA
     Dosage: DOSING AMOUNT: 1750 MG
     Route: 048
     Dates: start: 20100708, end: 20100804
  5. LAPATINIB [Suspect]
     Route: 048
     Dates: start: 20100817, end: 20100830
  6. LEVOTHYROXINE SODIUM [Concomitant]
     Dosage: REPORTED AS: LEVOTHROXINS FREQ: DAILY
  7. MULTI-VITAMIN [Concomitant]
     Dosage: FREQ: DAILY
  8. PROTONIX [Concomitant]
     Dosage: FREQ: DAILY
  9. ASCORBIC ACID [Concomitant]
     Dosage: FREQ: DAILY
  10. MIRALAX [Concomitant]
  11. MOTRIN [Concomitant]
     Dosage: FREQ: QID PRN
  12. OXYCODONE [Concomitant]
     Dosage: FREQ: DAILY PRN
  13. ZOFRAN [Concomitant]
     Dosage: FREQ: Q8HRS PRN
  14. IMODIUM [Concomitant]
     Dosage: FREQ: Q2HRS PRN
  15. CLINDAMYCIN [Concomitant]
  16. BENADRYL [Concomitant]
     Dosage: FERQ: Q6HRS PRN
  17. VITAMINE D [Concomitant]

REACTIONS (1)
  - ALANINE AMINOTRANSFERASE INCREASED [None]
